FAERS Safety Report 22320399 (Version 1)
Quarter: 2023Q2

REPORT INFORMATION
  Report Type: Spontaneous
  Country: AU (occurrence: AU)
  Receive Date: 20230515
  Receipt Date: 20230515
  Transmission Date: 20230722
  Serious: Yes (Hospitalization)
  Sender: FDA-Public Use
  Company Number: AU-MYLANLABS-2023M1049068

PATIENT
  Sex: Male

DRUGS (2)
  1. CLOZARIL [Suspect]
     Active Substance: CLOZAPINE
     Indication: Schizophrenia
     Dosage: 450 MILLIGRAM
     Route: 048
     Dates: start: 20150206
  2. CLOZARIL [Suspect]
     Active Substance: CLOZAPINE
     Dosage: 25 MILLIGRAM(25MG AND ARE TITRATING UPWARDS TO 200MG)
     Route: 048
     Dates: start: 20230504

REACTIONS (2)
  - Illness [Unknown]
  - Therapy cessation [Unknown]
